FAERS Safety Report 7653486-3 (Version None)
Quarter: 2011Q3

REPORT INFORMATION
  Report Type: 
  Country: None (occurrence: None)
  Receive Date: 20110803
  Receipt Date: 20110729
  Transmission Date: 20111222
  Serious: No
  Sender: FDA-Public Use
  Company Number: US-PFIZER INC-2011169180

PATIENT
  Sex: Female
  Weight: 109 kg

DRUGS (1)
  1. ZITHROMAX [Suspect]
     Indication: BRONCHITIS
     Dosage: 250 MG
     Route: 048
     Dates: start: 20110613, end: 20110616

REACTIONS (11)
  - THROAT IRRITATION [None]
  - RASH [None]
  - MALAISE [None]
  - EATING DISORDER [None]
  - DYSPEPSIA [None]
  - HYPERSENSITIVITY [None]
  - DYSPHONIA [None]
  - FLUID INTAKE REDUCED [None]
  - VOCAL CORD DISORDER [None]
  - RENAL DISORDER [None]
  - ORAL DISCOMFORT [None]
